FAERS Safety Report 15565663 (Version 1)
Quarter: 2018Q4

REPORT INFORMATION
  Report Type: Spontaneous
  Country: US (occurrence: US)
  Receive Date: 20181030
  Receipt Date: 20181030
  Transmission Date: 20190205
  Serious: No
  Sender: FDA-Public Use
  Company Number: US-NOVOPROD-587670

PATIENT
  Sex: Female

DRUGS (3)
  1. YUVAFEM [Suspect]
     Active Substance: ESTRADIOL HEMIHYDRATE
     Indication: URINARY TRACT INFECTION
     Dosage: THREE TIMES A WEEK
     Route: 067
  2. YUVAFEM [Suspect]
     Active Substance: ESTRADIOL HEMIHYDRATE
     Dosage: TWO TIMES A WEEK
     Route: 067
  3. YUVAFEM [Suspect]
     Active Substance: ESTRADIOL HEMIHYDRATE
     Dosage: UNK, QW
     Route: 067

REACTIONS (4)
  - Alopecia [Not Recovered/Not Resolved]
  - Vulvovaginal discomfort [Not Recovered/Not Resolved]
  - Vaginal odour [Not Recovered/Not Resolved]
  - Off label use [Not Recovered/Not Resolved]
